FAERS Safety Report 7029948-9 (Version None)
Quarter: 2010Q4

REPORT INFORMATION
  Report Type: 
  Country: None (occurrence: None)
  Receive Date: 20101006
  Receipt Date: 20100924
  Transmission Date: 20110411
  Serious: Yes (Other)
  Sender: FDA-Public Use
  Company Number: AU-WYE-H17825110

PATIENT
  Sex: Female

DRUGS (1)
  1. SOMAC [Suspect]
     Indication: DYSPEPSIA
     Dosage: 40 MG, UNSPECIFIED FREQUENCY
     Route: 048

REACTIONS (3)
  - ASTHENIA [None]
  - RASH [None]
  - SWELLING FACE [None]
